FAERS Safety Report 7325862-X (Version None)
Quarter: 2011Q1

REPORT INFORMATION
  Report Type: 
  Country: None (occurrence: None)
  Receive Date: 20110302
  Receipt Date: 20110223
  Transmission Date: 20110831
  Serious: Yes (Hospitalization)
  Sender: FDA-Public Use
  Company Number: ES-PFIZER INC-2010036768

PATIENT
  Age: 2 Year
  Sex: Male
  Weight: 11 kg

DRUGS (2)
  1. IRINOTECAN HCL [Suspect]
     Indication: MEDULLOBLASTOMA
     Dosage: 10 MG/M2 DAILY (5 MG DAILY, DAYS 1-5, 8-12, EVERY 3 WEEKS)
     Route: 042
     Dates: start: 20091231
  2. TEMOZOLOMIDE [Suspect]
     Indication: MEDULLOBLASTOMA
     Dosage: 125 MG/M2 DAILY (50 MG DAILY, DAYS 1-5, EVERY 3 WEEKS)
     Route: 048
     Dates: start: 20091231

REACTIONS (2)
  - GASTROENTERITIS [None]
  - DEHYDRATION [None]
